FAERS Safety Report 6916410-4 (Version None)
Quarter: 2010Q3

REPORT INFORMATION
  Report Type: 
  Country: None (occurrence: None)
  Receive Date: 20100810
  Receipt Date: 20100802
  Transmission Date: 20110219
  Serious: Yes (Hospitalization)
  Sender: FDA-Public Use
  Company Number: US-B.I. PHARMACEUTICALS,INC./RIDGEFIELD-2010-BP-08795BP

PATIENT
  Sex: Male
  Weight: 120.2 kg

DRUGS (1)
  1. DULCOLAX [Suspect]
     Indication: CONSTIPATION
     Route: 048
     Dates: start: 20100101

REACTIONS (3)
  - CONSTIPATION [None]
  - GASTRIC ULCER [None]
  - GLUCOSE TOLERANCE IMPAIRED [None]
